FAERS Safety Report 8514393 (Version 6)
Quarter: 2013Q2

REPORT INFORMATION
  Report Type: Spontaneous
  Country: US (occurrence: US)
  Receive Date: 20120416
  Receipt Date: 20130404
  Transmission Date: 20140414
  Serious: Yes (Hospitalization, Other)
  Sender: FDA-Public Use
  Company Number: US-009507513-1204USA01794

PATIENT
  Sex: Female
  Weight: 71.2 kg

DRUGS (7)
  1. FOSAMAX [Suspect]
     Indication: OSTEOPOROSIS PROPHYLAXIS
     Dosage: 10 MG, UNK
     Route: 048
     Dates: start: 1998, end: 2002
  2. FOSAMAX [Suspect]
     Dosage: 70 MG, UNK
     Route: 048
     Dates: start: 200212
  3. CALCIUM (UNSPECIFIED) [Concomitant]
     Dosage: 1200 MG, QD
     Dates: start: 1994
  4. MK-9278 [Concomitant]
     Dosage: UNK UNK, QD
     Dates: start: 1994
  5. HORMONES (UNSPECIFIED) [Concomitant]
     Dates: start: 1997, end: 2008
  6. ASPIRIN [Concomitant]
     Indication: HYPERTENSION
     Dates: start: 1997, end: 20120430
  7. PRINIVIL [Concomitant]
     Indication: HYPERTENSION
     Dates: start: 1997, end: 20120430

REACTIONS (29)
  - Femur fracture [Unknown]
  - Shock haemorrhagic [Unknown]
  - Femur fracture [Unknown]
  - Hypotension [Unknown]
  - Open reduction of fracture [Unknown]
  - Hypersensitivity [Unknown]
  - Low turnover osteopathy [Unknown]
  - Depression [Unknown]
  - Anxiety [Unknown]
  - Anger [Unknown]
  - Tooth disorder [Unknown]
  - Tooth fracture [Unknown]
  - Tooth disorder [Unknown]
  - Blood cholesterol increased [Unknown]
  - Adverse event [Unknown]
  - Bursitis [Unknown]
  - Bone disorder [Unknown]
  - Bone disorder [Unknown]
  - Bone disorder [Unknown]
  - Fall [Unknown]
  - Hiatus hernia [Unknown]
  - Helicobacter gastritis [Unknown]
  - Acrochordon [Unknown]
  - Upper extremity mass [Unknown]
  - Cataract [Unknown]
  - Vasomotor rhinitis [Unknown]
  - Eyelid cyst [Unknown]
  - Gastric ulcer [Unknown]
  - Musculoskeletal discomfort [Unknown]
